FAERS Safety Report 18617572 (Version 1)
Quarter: 2020Q4

REPORT INFORMATION
  Report Type: Spontaneous
  Country: US (occurrence: US)
  Receive Date: 20201214
  Receipt Date: 20201214
  Transmission Date: 20210114
  Serious: Yes (Hospitalization)
  Sender: FDA-Public Use
  Company Number: None

PATIENT
  Age: 11 Year
  Sex: Male

DRUGS (11)
  1. AMOX/K CLAV [Concomitant]
     Active Substance: AMOXICILLIN\CLAVULANATE POTASSIUM
  2. CYPROHEPTADINE. [Concomitant]
     Active Substance: CYPROHEPTADINE
  3. PULMOZYME [Concomitant]
     Active Substance: DORNASE ALFA
  4. TOBRAMYCIN. [Concomitant]
     Active Substance: TOBRAMYCIN
  5. URSODIOL. [Concomitant]
     Active Substance: URSODIOL
  6. ALBUTEROL NEB [Concomitant]
     Active Substance: ALBUTEROL
  7. PNACREAZE [Concomitant]
  8. BUDES/FORMOT 160/4.5MCG INH [Suspect]
     Active Substance: BUDESONIDE\FORMOTEROL FUMARATE DIHYDRATE
     Indication: CYSTIC FIBROSIS
     Dosage: ?          OTHER DOSE:2 PUFFS;?
     Route: 055
     Dates: start: 20200430
  9. ALBUTEROL AER [Concomitant]
     Active Substance: ALBUTEROL
  10. DEKAS PLUS [Concomitant]
  11. CREON [Concomitant]
     Active Substance: PANCRELIPASE AMYLASE\PANCRELIPASE LIPASE\PANCRELIPASE PROTEASE

REACTIONS (2)
  - Bacterial infection [None]
  - Therapy interrupted [None]

NARRATIVE: CASE EVENT DATE: 202011
